FAERS Safety Report 7796134 (Version 7)
Quarter: 2014Q1

REPORT INFORMATION
  Report Type: Report from Study
  Country: JP (occurrence: JP)
  Receive Date: 20110202
  Receipt Date: 20140226
  Transmission Date: 20141002
  Serious: Yes (Hospitalization)
  Sender: FDA-Public Use
  Company Number: JP-SHIRE-SPV1-2011-00166

PATIENT
  Age: 49 Year
  Sex: Male

DRUGS (46)
  1. 405 (LANTHANUM CARBONATE) [Suspect]
     Indication: HYPERPHOSPHATAEMIA
     Dosage: 500 MG, OTHER
     Route: 048
     Dates: start: 20091111, end: 20100301
  2. 405 (LANTHANUM CARBONATE) [Suspect]
     Dosage: UNK UNK, OTHER
     Route: 048
     Dates: start: 20100301, end: 20110127
  3. 405 (LANTHANUM CARBONATE) [Suspect]
     Dosage: 750 MG, OTHER
     Route: 048
     Dates: start: 20111017, end: 20111214
  4. 405 (LANTHANUM CARBONATE) [Suspect]
     Dosage: 1500 MG, OTHER
     Route: 048
     Dates: start: 20111215, end: 20120223
  5. 405 (LANTHANUM CARBONATE) [Suspect]
     Dosage: 2250 MG, OTHER
     Route: 048
     Dates: start: 20120224, end: 20120810
  6. 405 (LANTHANUM CARBONATE) [Suspect]
     Indication: HYPERPHOSPHATAEMIA
     Dosage: 1500 MG, UNKNOWN
     Route: 048
     Dates: start: 20120810, end: 20130206
  7. PHOSBLOCK [Suspect]
     Indication: CONGENITAL CYSTIC KIDNEY DISEASE
     Dosage: 3.75 G, UNKNOWN
     Route: 048
     Dates: start: 20081027, end: 20110227
  8. PHOSBLOCK [Suspect]
     Dosage: 3 G, UNKNOWN
     Route: 048
     Dates: start: 20110228, end: 20111120
  9. PHOSBLOCK [Suspect]
     Dosage: 3.5 G, UNKNOWN
     Route: 048
     Dates: start: 20111121, end: 20120710
  10. PHOSBLOCK [Suspect]
     Dosage: 1.5 G, UNKNOWN
     Route: 048
     Dates: start: 20120711, end: 20130206
  11. PRECIPITATED CALCIUM CARBONATE [Concomitant]
     Indication: HYPERPHOSPHATAEMIA
     Dosage: 3 G, UNKNOWN
     Route: 048
     Dates: start: 20060612
  12. PRECIPITATED CALCIUM CARBONATE [Concomitant]
     Dosage: 4.5 G, UNKNOWN
     Route: 048
     Dates: start: 20110228, end: 20110327
  13. PRECIPITATED CALCIUM CARBONATE [Concomitant]
     Dosage: 6.0 G, UNKNOWN
     Route: 048
     Dates: start: 20110328, end: 20111120
  14. PRECIPITATED CALCIUM CARBONATE [Concomitant]
     Dosage: 7 G, UNKNOWN
     Route: 048
     Dates: start: 20111121, end: 20120710
  15. PRECIPITATED CALCIUM CARBONATE [Concomitant]
     Dosage: 4.5 G, UNKNOWN
     Route: 048
     Dates: start: 20120711, end: 20130206
  16. ALFAROL [Concomitant]
     Indication: PRODUCT USED FOR UNKNOWN INDICATION
     Dosage: 0.5 ?G, UNKNOWN
     Route: 048
     Dates: start: 20060724, end: 20101024
  17. ALFAROL [Concomitant]
     Dosage: 0.25 ?G, UNKNOWN
     Route: 048
     Dates: start: 20120116, end: 20121021
  18. ALFAROL [Concomitant]
     Dosage: 0.5 ?G, UNKNOWN
     Route: 048
     Dates: start: 20121022, end: 20130206
  19. ADALAT CR [Concomitant]
     Indication: PRODUCT USED FOR UNKNOWN INDICATION
     Dosage: 40 MG, UNKNOWN
     Route: 048
  20. ALOSITOL [Concomitant]
     Indication: PRODUCT USED FOR UNKNOWN INDICATION
     Dosage: 100 MG, UNKNOWN
     Route: 048
  21. TAKEPRON [Concomitant]
     Indication: PRODUCT USED FOR UNKNOWN INDICATION
     Dosage: 15 MG, UNKNOWN
     Route: 048
  22. MUCOSTA [Concomitant]
     Indication: PRODUCT USED FOR UNKNOWN INDICATION
     Dosage: 300 MG, UNKNOWN
     Route: 048
  23. SHAKUYAKUKANZOUTOU [Concomitant]
     Indication: PRODUCT USED FOR UNKNOWN INDICATION
     Dosage: 2.5 G, UNKNOWN
     Route: 048
  24. OXAROL [Concomitant]
     Indication: PRODUCT USED FOR UNKNOWN INDICATION
     Dosage: 7.5 ?G, 1X/WEEK
     Route: 042
     Dates: start: 20101025
  25. OXAROL [Concomitant]
     Dosage: 15 ?G, 1X/WEEK
     Route: 042
     Dates: start: 20101122, end: 20110126
  26. OXAROL [Concomitant]
     Dosage: 7.5 ?G, 1X/WEEK
     Route: 042
     Dates: start: 20110127, end: 20110926
  27. REGPARA [Concomitant]
     Indication: HYPERPARATHYROIDISM SECONDARY
     Dosage: 2.5 MG, UNKNOWN
     Route: 048
     Dates: start: 20110228, end: 20130206
  28. EPERISONE HYDROCHLORIDE [Concomitant]
     Indication: TENSION HEADACHE
     Dosage: UNK UNK, UNKNOWN
     Route: 065
     Dates: start: 20100205
  29. EPERISONE HYDROCHLORIDE [Concomitant]
     Indication: UPPER RESPIRATORY TRACT INFLAMMATION
     Dosage: UNK UNK, UNKNOWN
     Route: 065
     Dates: start: 20101110
  30. SERRAPEPTASE [Concomitant]
     Indication: PHARYNGITIS
     Dosage: UNK UNK, UNKNOWN
     Route: 065
     Dates: start: 20100219
  31. SERRAPEPTASE [Concomitant]
     Indication: UPPER RESPIRATORY TRACT INFLAMMATION
     Dosage: UNK UNK, UNKNOWN
     Route: 065
     Dates: start: 20101105
  32. ACETYLSALICYLIC ACID [Concomitant]
     Indication: LACUNAR INFARCTION
     Dosage: UNK UNK, UNKNOWN
     Route: 065
     Dates: start: 20100301
  33. CEFCAPENE PIVOXIL HYDROCHLORIDE [Concomitant]
     Indication: DIVERTICULITIS
     Dosage: UNK UNK, UNKNOWN
     Route: 065
     Dates: start: 20100402
  34. CEFCAPENE PIVOXIL HYDROCHLORIDE [Concomitant]
     Indication: FLANK PAIN
     Dosage: UNK, UNKNOWN
     Route: 065
     Dates: start: 20121231
  35. LOXOPROFEN SODIUM [Concomitant]
     Indication: DIVERTICULITIS
     Dosage: UNK UNK, UNKNOWN
     Route: 065
     Dates: start: 20100402
  36. LOXOPROFEN SODIUM [Concomitant]
     Indication: TENSION HEADACHE
     Dosage: UNK UNK, UNKNOWN
     Route: 065
     Dates: start: 20100712
  37. KETOPROFEN [Concomitant]
     Indication: BACK PAIN
     Dosage: UNK UNK, UNKNOWN
     Route: 065
     Dates: start: 20100428
  38. DIPHENHYDRAMINE [Concomitant]
     Indication: URTICARIA
     Dosage: UNK UNK, UNKNOWN
     Route: 065
     Dates: start: 20100505
  39. LORATADINE [Concomitant]
     Indication: URTICARIA
     Dosage: UNK UNK, UNKNOWN
     Route: 065
     Dates: start: 20100521
  40. PL GRAN. [Concomitant]
     Indication: UPPER RESPIRATORY TRACT INFLAMMATION
     Dosage: UNK UNK, UNKNOWN
     Route: 065
     Dates: start: 20100719
  41. PL GRAN. [Concomitant]
     Dosage: UNK UNK, UNKNOWN
     Route: 065
     Dates: start: 20101105
  42. DEQUALINIUM [Concomitant]
     Indication: UPPER RESPIRATORY TRACT INFLAMMATION
     Dosage: UNK UNK, UNKNOWN
     Route: 065
     Dates: start: 20101105
  43. DEXTROMETHORPHAN HBR [Concomitant]
     Indication: UPPER RESPIRATORY TRACT INFLAMMATION
     Dosage: UNK UNK, UNKNOWN
     Route: 065
     Dates: start: 20101108
  44. SEVELAMER [Concomitant]
     Indication: PRODUCT USED FOR UNKNOWN INDICATION
     Dosage: 3 G, 1X/DAY:QD
     Route: 048
  45. SEVELAMER [Concomitant]
     Dosage: 3.5 G, 1X/DAY:QD
     Route: 048
     Dates: start: 20111121
  46. SEVELAMER [Concomitant]
     Dosage: 1.5 G, 1X/DAY:QD
     Route: 048
     Dates: start: 20120711

REACTIONS (10)
  - Large intestine perforation [Recovered/Resolved]
  - Syncope [Recovered/Resolved]
  - Hand fracture [Recovered/Resolved]
  - Incisional hernia [Recovered/Resolved]
  - Inguinal hernia [Recovered/Resolved]
  - Fall [Recovered/Resolved]
  - VIIth nerve paralysis [Unknown]
  - Facial bones fracture [Recovered/Resolved]
  - Renal cyst infection [Recovered/Resolved]
  - Renal cyst haemorrhage [Recovered/Resolved]
